FAERS Safety Report 5736709-7 (Version None)
Quarter: 2008Q2

REPORT INFORMATION
  Report Type: 
  Country: None (occurrence: None)
  Receive Date: 20080513
  Receipt Date: 20080502
  Transmission Date: 20081010
  Serious: Yes (Hospitalization)
  Sender: FDA-Public Use
  Company Number: FR-PFIZER INC-2008039289

PATIENT
  Sex: Female

DRUGS (12)
  1. ALDACTONE [Suspect]
     Route: 048
  2. ALDACTAZIDE [Suspect]
     Route: 048
  3. PARACETAMOL/ CAFFEINE [Suspect]
     Route: 048
  4. DEXTROPROPOXYPHENE/ PARACETAMOL [Suspect]
     Route: 048
  5. ACETAMINOPHEN [Suspect]
     Route: 048
  6. RILMENIDINE [Suspect]
     Route: 048
  7. SIMVASTATIN [Concomitant]
     Route: 048
  8. AMIODARONE HCL [Concomitant]
     Route: 048
  9. ALENDRONATE SODIUM/COLECALCIFEROL [Concomitant]
  10. CALCIUM CARBONATE/COLECALCIFEROL [Concomitant]
  11. ACETYLSALICYLATE LYSINE [Concomitant]
  12. DIGOXIN [Concomitant]

REACTIONS (3)
  - CYTOLYTIC HEPATITIS [None]
  - RENAL FAILURE ACUTE [None]
  - RENAL TUBULAR NECROSIS [None]
